FAERS Safety Report 20957103 (Version 1)
Quarter: 2022Q2

REPORT INFORMATION
  Report Type: Spontaneous
  Country: US (occurrence: None)
  Receive Date: 20220614
  Receipt Date: 20220614
  Transmission Date: 20220721
  Serious: Yes (Other)
  Sender: FDA-Public Use
  Company Number: None

PATIENT
  Age: 61 Year
  Sex: Male
  Weight: 82.9 kg

DRUGS (1)
  1. RUXIENCE [Suspect]
     Active Substance: RITUXIMAB-PVVR
     Indication: Extranodal marginal zone B-cell lymphoma (MALT type)
     Dosage: OTHER FREQUENCY : WEEKLY;?
     Route: 042
     Dates: start: 20220607

REACTIONS (8)
  - Chills [None]
  - Tremor [None]
  - Feeling hot [None]
  - Dizziness [None]
  - Nausea [None]
  - Vomiting [None]
  - Vomiting [None]
  - Blood pressure decreased [None]

NARRATIVE: CASE EVENT DATE: 20220607
